FAERS Safety Report 24065835 (Version 1)
Quarter: 2024Q3

REPORT INFORMATION
  Report Type: Spontaneous
  Country: US (occurrence: US)
  Receive Date: 20240709
  Receipt Date: 20240709
  Transmission Date: 20241016
  Serious: No
  Sender: VIRTUS PHARMACEUTICALS
  Company Number: US-VIRTUS PHARMACEUTICALS, LLC-2023VTS00023

PATIENT
  Sex: Female

DRUGS (2)
  1. PROMETRIUM [Suspect]
     Active Substance: PROGESTERONE
     Dosage: UNK
  2. PROGESTERONE [Suspect]
     Active Substance: PROGESTERONE
     Dosage: UNK

REACTIONS (8)
  - Drug ineffective [Unknown]
  - Malabsorption [Unknown]
  - Rash [Unknown]
  - Blood oestrogen decreased [Unknown]
  - Progesterone decreased [Unknown]
  - Mood altered [Unknown]
  - Feeling abnormal [Unknown]
  - Confusional state [Unknown]
